FAERS Safety Report 23579007 (Version 3)
Quarter: 2024Q2

REPORT INFORMATION
  Report Type: Spontaneous
  Country: KZ (occurrence: KZ)
  Receive Date: 20240229
  Receipt Date: 20240607
  Transmission Date: 20240716
  Serious: Yes (Other)
  Sender: FDA-Public Use
  Company Number: KZ-Merck Healthcare KGaA-2024009897

PATIENT
  Age: 23 Year
  Sex: Female

DRUGS (2)
  1. MAVENCLAD [Suspect]
     Active Substance: CLADRIBINE
     Indication: Multiple sclerosis
     Dosage: FIRST COURSE.
     Dates: start: 2021
  2. MAVENCLAD [Suspect]
     Active Substance: CLADRIBINE
     Dosage: SECOND COURSE.
     Dates: end: 202302

REACTIONS (4)
  - Bundle branch block right [Unknown]
  - Multiple sclerosis relapse [Not Recovered/Not Resolved]
  - Hepatitis toxic [Recovering/Resolving]
  - Paranasal cyst [Unknown]

NARRATIVE: CASE EVENT DATE: 20240205
